FAERS Safety Report 7257113-9 (Version None)
Quarter: 2011Q1

REPORT INFORMATION
  Report Type: 
  Country: None (occurrence: None)
  Receive Date: 20110129
  Receipt Date: 20100804
  Transmission Date: 20110831
  Serious: Yes (Other)
  Sender: FDA-Public Use
  Company Number: US-ABBOTT-10P-163-0661152-00

PATIENT
  Sex: Female
  Weight: 78.542 kg

DRUGS (28)
  1. PREDNISONE [Concomitant]
     Route: 048
     Dates: start: 20100121, end: 20100125
  2. CELEBREX [Concomitant]
     Indication: RHEUMATOID ARTHRITIS
     Route: 048
     Dates: start: 20091015, end: 20091115
  3. IMURAN [Concomitant]
     Route: 048
     Dates: start: 20100525, end: 20100716
  4. OMEPRAZOLE [Concomitant]
     Indication: DYSPEPSIA
     Route: 048
     Dates: start: 20100328, end: 20100716
  5. PREDNISONE [Concomitant]
     Route: 048
     Dates: start: 20091214, end: 20100106
  6. PREDNISONE [Concomitant]
     Route: 048
     Dates: start: 20100127, end: 20100131
  7. PREDNISONE [Concomitant]
     Route: 048
     Dates: start: 20100422, end: 20100424
  8. RHOGAM [Concomitant]
     Indication: RHESUS INCOMPATIBILITY
     Route: 050
     Dates: start: 20100416, end: 20100416
  9. HUMIRA [Suspect]
     Indication: RHEUMATOID ARTHRITIS
     Route: 050
     Dates: start: 20091015, end: 20091101
  10. VITAMIN D [Concomitant]
     Route: 048
     Dates: start: 20100416, end: 20100716
  11. PREDNISONE [Concomitant]
     Route: 048
     Dates: start: 20100225, end: 20100421
  12. H1N1 2009 INFLUENZA VACCINE NOS [Concomitant]
     Indication: INFLUENZA IMMUNISATION
     Route: 050
     Dates: start: 20091214, end: 20091214
  13. CYCLOBENZAPRINE [Concomitant]
     Indication: PULMONARY OEDEMA
     Route: 048
     Dates: start: 20100503, end: 20100506
  14. ENBREL [Concomitant]
     Indication: RHEUMATOID ARTHRITIS
     Route: 050
     Dates: start: 20100224, end: 20100412
  15. VITAMIN D [Concomitant]
     Indication: VITAMIN D
     Route: 048
     Dates: start: 20091015, end: 20100415
  16. COFFEE [Concomitant]
     Dosage: 1 SERVING
     Dates: start: 20091015, end: 20100716
  17. PREDNISONE [Concomitant]
     Route: 048
     Dates: start: 20100213, end: 20100223
  18. PREDNISONE [Concomitant]
     Dosage: 25-30 MG
     Route: 048
     Dates: start: 20100426, end: 20100716
  19. PREDNISONE [Concomitant]
     Indication: RHEUMATOID ARTHRITIS
     Route: 048
     Dates: start: 20091015, end: 20091123
  20. IMURAN [Concomitant]
     Route: 048
     Dates: start: 20100510, end: 20100524
  21. VITAMIN D [Concomitant]
     Route: 048
     Dates: start: 20100416, end: 20100716
  22. MULTI-VITAMINS [Concomitant]
     Dosage: 4 PILLS IN 1 DAY
     Route: 048
     Dates: start: 20091015, end: 20100716
  23. LIQUOR [Concomitant]
     Dosage: 1 MIXED DRINK W/2 SHOTS
     Dates: start: 20091107, end: 20091107
  24. PREDNISONE [Concomitant]
     Route: 048
     Dates: start: 20100224, end: 20100224
  25. MYLANTA [Concomitant]
     Indication: DYSPEPSIA
     Route: 048
     Dates: start: 20100301, end: 20100325
  26. FOLIC ACID [Concomitant]
     Route: 048
     Dates: start: 20091115, end: 20100403
  27. IMURAN [Concomitant]
     Indication: RHEUMATOID ARTHRITIS
     Route: 048
     Dates: start: 20100430, end: 20100509
  28. TYLENOL-500 [Concomitant]
     Indication: ARTHRALGIA
     Dosage: 2 PILLS TOTAL
     Route: 048
     Dates: start: 20100520, end: 20100527

REACTIONS (3)
  - UTERINE INFECTION [None]
  - PULMONARY OEDEMA [None]
  - RESPIRATORY TRACT INFECTION [None]
